FAERS Safety Report 6377013-6 (Version None)
Quarter: 2009Q3

REPORT INFORMATION
  Report Type: 
  Country: None (occurrence: None)
  Receive Date: 20090925
  Receipt Date: 20090918
  Transmission Date: 20100115
  Serious: Yes (Hospitalization)
  Sender: FDA-Public Use
  Company Number: US-BAYER-200914517BCC

PATIENT
  Age: 46 Year
  Sex: Female
  Weight: 95 kg

DRUGS (1)
  1. ALEVE [Suspect]
     Indication: BACK PAIN
     Dosage: TOTAL DAILY DOSE: 220 MG  UNIT DOSE: 220 MG
     Route: 048
     Dates: start: 20090909, end: 20090909

REACTIONS (11)
  - ANAPHYLACTIC SHOCK [None]
  - BLOOD PRESSURE DECREASED [None]
  - BODY TEMPERATURE DECREASED [None]
  - CHEST DISCOMFORT [None]
  - DYSPNOEA [None]
  - LIP SWELLING [None]
  - LOSS OF CONSCIOUSNESS [None]
  - NERVE INJURY [None]
  - PARAESTHESIA [None]
  - SWOLLEN TONGUE [None]
  - THROAT TIGHTNESS [None]
